FAERS Safety Report 4983004-X (Version None)
Quarter: 2006Q2

REPORT INFORMATION
  Report Type: 
  Country: None (occurrence: None)
  Receive Date: 20060426
  Receipt Date: 20060420
  Transmission Date: 20061013
  Serious: Yes (Hospitalization)
  Sender: FDA-Public Use
  Company Number: US-SOLVAY-00206001323

PATIENT
  Age: 22070 Day
  Sex: Male
  Weight: 97 kg

DRUGS (3)
  1. CELEXA [Concomitant]
     Indication: AFFECTIVE DISORDER
     Dosage: DAILY DOSE: 20 MILLIGRAM(S)
     Route: 048
     Dates: start: 20040101
  2. ANDROGEL [Suspect]
     Indication: BLOOD TESTOSTERONE DECREASED
     Dosage: DAILY DOSE: UNKNOWN. ALTERNATING DOSES OF 5G AND 10 G DAILY.
     Route: 062
     Dates: start: 20040101
  3. LEVOTHROID [Concomitant]
     Indication: HYPOTHYROIDISM
     Dosage: DAILY DOSE: 25 MICROGRAM(S)
     Route: 048
     Dates: start: 20060329

REACTIONS (1)
  - PULMONARY EMBOLISM [None]
